FAERS Safety Report 8409115 (Version 2)
Quarter: 2012Q4

REPORT INFORMATION
  Report Type: 
  Country: CA (occurrence: CA)
  Receive Date: 20120216
  Receipt Date: 20120829
  Transmission Date: 20130627
  Serious: Yes (Hospitalization, Other)
  Sender: FDA-Public Use
  Company Number: CA-ROCHE-1040461

PATIENT
  Age: 36 Year
  Sex: Female

DRUGS (4)
  1. XOLAIR [Suspect]
     Indication: ASTHMA
     Route: 058
     Dates: start: 20110629
  2. ADVAIR [Concomitant]
  3. SINGULAIR [Concomitant]
  4. VENTOLIN [Concomitant]

REACTIONS (5)
  - Pneumonia [Unknown]
  - Influenza like illness [Unknown]
  - Dyspnoea [Unknown]
  - Asthma [Unknown]
  - Headache [Unknown]
